FAERS Safety Report 20308652 (Version 1)
Quarter: 2022Q1

REPORT INFORMATION
  Report Type: Spontaneous
  Country: AU (occurrence: AU)
  Receive Date: 20220107
  Receipt Date: 20220107
  Transmission Date: 20220424
  Serious: Yes (Hospitalization, Other)
  Sender: FDA-Public Use
  Company Number: AU-LUPIN PHARMACEUTICALS INC.-2021-26488

PATIENT
  Age: 64 Year
  Sex: Female

DRUGS (6)
  1. METHYLPREDNISOLONE [Suspect]
     Active Substance: METHYLPREDNISOLONE
     Indication: Henoch-Schonlein purpura
     Dosage: 1 GRAM, QD, PULSED
     Route: 065
  2. PREDNISOLONE [Suspect]
     Active Substance: PREDNISOLONE
     Indication: Henoch-Schonlein purpura
     Dosage: UNK
     Route: 048
  3. MYCOPHENOLIC ACID [Suspect]
     Active Substance: MYCOPHENOLIC ACID
     Indication: Henoch-Schonlein purpura
     Dosage: UNK
     Route: 048
  4. AZATHIOPRINE [Suspect]
     Active Substance: AZATHIOPRINE
     Indication: Henoch-Schonlein purpura
     Dosage: 150 MILLIGRAM, QD
     Route: 048
  5. RITUXIMAB [Suspect]
     Active Substance: RITUXIMAB
     Indication: Henoch-Schonlein purpura
     Dosage: 1 GRAM, ON DAY 0 AND DAY 14
     Route: 042
  6. SIROLIMUS [Suspect]
     Active Substance: SIROLIMUS
     Indication: Henoch-Schonlein purpura
     Dosage: UNK
     Route: 048

REACTIONS (4)
  - Hypogammaglobulinaemia [Unknown]
  - Adrenal insufficiency [Unknown]
  - Drug ineffective for unapproved indication [Unknown]
  - Off label use [Unknown]
